FAERS Safety Report 7208249-X (Version None)
Quarter: 2010Q4

REPORT INFORMATION
  Report Type: 
  Country: None (occurrence: None)
  Receive Date: 20101126
  Receipt Date: 20100929
  Transmission Date: 20110411
  Serious: Yes (Hospitalization)
  Sender: FDA-Public Use
  Company Number: 312142

PATIENT
  Age: 44 Year
  Sex: Female
  Weight: 90.7 kg

DRUGS (22)
  1. VICTOZA [Suspect]
     Indication: TYPE 2 DIABETES MELLITUS
     Dosage: SEE IMAGE
     Route: 058
     Dates: start: 20100501, end: 20100501
  2. VICTOZA [Suspect]
     Indication: TYPE 2 DIABETES MELLITUS
     Dosage: SEE IMAGE
     Route: 058
     Dates: end: 20100708
  3. VICTOZA [Suspect]
     Indication: TYPE 2 DIABETES MELLITUS
     Dosage: SEE IMAGE
     Route: 058
     Dates: start: 20100504
  4. VICTOZA [Suspect]
     Indication: TYPE 2 DIABETES MELLITUS
     Dosage: SEE IMAGE
     Route: 058
     Dates: start: 20100622
  5. LEVEMIR [Concomitant]
  6. ENALAPRIL MALEATE [Concomitant]
  7. ADVAIR DISKUS 100/50 [Concomitant]
  8. ASPIRIN [Concomitant]
  9. EFFEXOR /01233801/ (VENLAFAXINE) [Concomitant]
  10. ELAVIL /00002202/ (AMITRIPTYLINE HYDROCHLORIDE) [Concomitant]
  11. HYDROCHLOROTHIAZIDE [Concomitant]
  12. IMITREX /01044801/ (SUMATRIPTAN) [Concomitant]
  13. LORATADINE [Concomitant]
  14. LORTAB [Concomitant]
  15. MELOXICAM [Concomitant]
  16. METFORMIN HCL [Concomitant]
  17. NEURONTIN [Concomitant]
  18. PLAVIX [Concomitant]
  19. PROVENTIL HFA /00139501/ (CLOPIDOGREL) [Concomitant]
  20. SIMVASTATIN [Concomitant]
  21. ULTRACET [Concomitant]
  22. ERGOCALCIFEROL [Concomitant]

REACTIONS (2)
  - NAUSEA [None]
  - PANCREATITIS ACUTE [None]
